FAERS Safety Report 22150451 (Version 1)
Quarter: 2023Q1

REPORT INFORMATION
  Report Type: Spontaneous
  Country: US (occurrence: US)
  Receive Date: 20230329
  Receipt Date: 20230329
  Transmission Date: 20230417
  Serious: Yes (Other)
  Sender: FDA-Public Use
  Company Number: US-ABBOTT-98P-163-0057927-00/DKLU1044783

PATIENT
  Age: 18 Year
  Sex: Female
  Weight: 94.43 kg

DRUGS (5)
  1. PANHEMATIN [Suspect]
     Active Substance: HEMIN
     Indication: Blood disorder
     Dosage: UNK UNK, UNK
     Route: 042
     Dates: start: 19980605, end: 19980605
  2. ANCEF [Concomitant]
     Active Substance: CEFAZOLIN SODIUM
     Indication: Product used for unknown indication
     Dosage: UNK
     Route: 065
     Dates: start: 19980619, end: 19980619
  3. ROCEPHIN [Concomitant]
     Active Substance: CEFTRIAXONE SODIUM
     Indication: Product used for unknown indication
     Dosage: UNK
     Route: 065
     Dates: start: 19980705, end: 19980707
  4. CIPRO [Concomitant]
     Active Substance: CIPROFLOXACIN HYDROCHLORIDE
     Indication: Product used for unknown indication
     Dosage: UNK
     Route: 065
     Dates: start: 19980707, end: 19980714
  5. LEVAQUIN [Concomitant]
     Active Substance: LEVOFLOXACIN
     Indication: Product used for unknown indication
     Dosage: UNK
     Route: 065
     Dates: start: 199808

REACTIONS (7)
  - Sepsis [Recovered/Resolved]
  - Respiratory failure [Recovered/Resolved]
  - Vascular access site extravasation [Recovered/Resolved]
  - Prothrombin level increased [Recovered/Resolved]
  - Product administration error [Unknown]
  - Accidental exposure to product [Unknown]
  - Off label use [Unknown]

NARRATIVE: CASE EVENT DATE: 19980605
